FAERS Safety Report 4358204-2 (Version None)
Quarter: 2004Q2

REPORT INFORMATION
  Report Type: 
  Country: None (occurrence: None)
  Receive Date: 20040511
  Receipt Date: 20040428
  Transmission Date: 20050107
  Serious: Yes (Other)
  Sender: FDA-Public Use
  Company Number: 2004028897

PATIENT
  Age: 58 Year
  Sex: Female
  Weight: 90.7194 kg

DRUGS (9)
  1. NEURONTIN [Suspect]
     Indication: NEURALGIA
     Dosage: 1800 MG TID, ORAL
     Route: 048
     Dates: start: 20030101
  2. IBUPROFEN [Concomitant]
  3. BUDESONIDE (BUDESONIDE) [Concomitant]
  4. TRIAMCINOLONE ACETONIDE [Concomitant]
  5. SALMETEROL XINAFOATE (SALMETEROL XINAFOATE) [Concomitant]
  6. NARINE REPETABS (LORATADINE, PSEUDOEPHEDRINE SULFATE) [Concomitant]
  7. DYAZIDE [Concomitant]
  8. CIMETIDINE [Concomitant]
  9. FLUOCINONIDE [Concomitant]

REACTIONS (2)
  - DRUG EFFECT DECREASED [None]
  - PHARMACEUTICAL PRODUCT COMPLAINT [None]
